FAERS Safety Report 6743277-X (Version None)
Quarter: 2010Q2

REPORT INFORMATION
  Report Type: 
  Country: None (occurrence: None)
  Receive Date: 20100527
  Receipt Date: 20100517
  Transmission Date: 20101027
  Serious: Yes (Other)
  Sender: FDA-Public Use
  Company Number: HQWYE896306APR07

PATIENT
  Sex: Male
  Weight: 11.2 kg

DRUGS (5)
  1. BENEFIX [Suspect]
     Indication: FACTOR IX DEFICIENCY
     Dosage: 1000 UNITS IVP AS NEEDED
     Route: 042
     Dates: start: 20061229, end: 20071011
  2. BENEFIX [Suspect]
     Dosage: APPROXIMATELY 100 IU/KG
     Dates: start: 20070409, end: 20070409
  3. BENEFIX [Suspect]
     Dosage: 19 INFUSIONS, 100 IU/KG ON-DEMAND TREATMENT FOR BLEEDING EPISODES
     Route: 042
     Dates: start: 20070101
  4. BENEFIX [Suspect]
     Dosage: SINGLE ON-DEMAND THERAPY TREATMENT OF APPROXIMATELY 60 IU KG FOR THREE SPONTANEOUS BLEEDING EPISODES
     Route: 042
  5. BENEFIX [Suspect]
     Route: 042

REACTIONS (1)
  - FACTOR IX INHIBITION [None]
